FAERS Safety Report 5023689-5 (Version None)
Quarter: 2006Q2

REPORT INFORMATION
  Report Type: 
  Country: None (occurrence: None)
  Receive Date: 20060428
  Receipt Date: 20060202
  Transmission Date: 20061013
  Serious: No
  Sender: FDA-Public Use
  Company Number: WAES 0512USA00214

PATIENT
  Age: 57 Year
  Sex: Female

DRUGS (6)
  1. EMEND [Suspect]
     Indication: NAUSEA
     Dosage: 125 MG/1X/PO; SEE IMAGE
     Route: 048
     Dates: start: 20051117, end: 20051117
  2. EMEND [Suspect]
     Indication: VOMITING
     Dosage: 125 MG/1X/PO; SEE IMAGE
     Route: 048
     Dates: start: 20051117, end: 20051117
  3. EMEND [Suspect]
     Indication: NAUSEA
     Dosage: 125 MG/1X/PO; SEE IMAGE
     Route: 048
     Dates: start: 20051118, end: 20051119
  4. EMEND [Suspect]
     Indication: VOMITING
     Dosage: 125 MG/1X/PO; SEE IMAGE
     Route: 048
     Dates: start: 20051118, end: 20051119
  5. CARBOPLATIN [Concomitant]
  6. DOCETAXEL [Concomitant]

REACTIONS (3)
  - PRURITUS [None]
  - RASH [None]
  - SKIN BURNING SENSATION [None]
